FAERS Safety Report 16884697 (Version 4)
Quarter: 2020Q1

REPORT INFORMATION
  Report Type: Report from Study
  Country: None (occurrence: CO)
  Receive Date: 20191004
  Receipt Date: 20200314
  Transmission Date: 20200409
  Serious: Yes (Life-Threatening, Other)
  Sender: FDA-Public Use
  Company Number: CO-ABBVIE-19K-036-2780211-00

PATIENT
  Sex: Male
  Weight: 84 kg

DRUGS (3)
  1. HUMIRA [Suspect]
     Active Substance: ADALIMUMAB
     Indication: RHEUMATOID ARTHRITIS
     Route: 058
     Dates: start: 20081125
  2. CALENDULA [Concomitant]
     Active Substance: CALENDULA OFFICINALIS FLOWERING TOP
     Indication: PRODUCT USED FOR UNKNOWN INDICATION
  3. HUMIRA [Suspect]
     Active Substance: ADALIMUMAB
     Indication: RHEUMATOID ARTHRITIS
     Route: 058
     Dates: start: 2010

REACTIONS (9)
  - Joint swelling [Recovering/Resolving]
  - Coronary artery disease [Recovering/Resolving]
  - Auditory disorder [Not Recovered/Not Resolved]
  - Urinary tract infection [Unknown]
  - Myocardial infarction [Recovering/Resolving]
  - Overweight [Not Recovered/Not Resolved]
  - Pain in extremity [Recovering/Resolving]
  - Benign prostatic hyperplasia [Not Recovered/Not Resolved]
  - Cardiac neoplasm unspecified [Recovering/Resolving]

NARRATIVE: CASE EVENT DATE: 2010
